FAERS Safety Report 17792781 (Version 4)
Quarter: 2025Q4

REPORT INFORMATION
  Report Type: Report from Study
  Country: US (occurrence: US)
  Receive Date: 20200515
  Receipt Date: 20251027
  Transmission Date: 20260117
  Serious: Yes (Other)
  Sender: TAKEDA
  Company Number: US-SHIRE-US202016273

PATIENT
  Age: 41 Year
  Sex: Female

DRUGS (3)
  1. PARATHYROID HORMONE [Suspect]
     Active Substance: PARATHYROID HORMONE
     Indication: Product used for unknown indication
     Dosage: 75 MICROGRAM, QD
  2. PARATHYROID HORMONE [Suspect]
     Active Substance: PARATHYROID HORMONE
     Dosage: 50 MICROGRAM, QD
  3. PARATHYROID HORMONE [Suspect]
     Active Substance: PARATHYROID HORMONE

REACTIONS (7)
  - Blood calcium decreased [Unknown]
  - Injection site bruising [Unknown]
  - Injection site pain [Unknown]
  - Bone pain [Unknown]
  - Polyp [Unknown]
  - Dyspnoea [Unknown]
  - Product dose omission issue [Unknown]
